FAERS Safety Report 24841137 (Version 3)
Quarter: 2025Q2

REPORT INFORMATION
  Report Type: Spontaneous
  Country: US (occurrence: US)
  Receive Date: 20250114
  Receipt Date: 20250422
  Transmission Date: 20250717
  Serious: Yes (Life-Threatening, Hospitalization, Other)
  Sender: MERCK SHARP & DOHME LLC
  Company Number: US-009507513-2501USA002975

PATIENT
  Age: 62 Year
  Sex: Female

DRUGS (5)
  1. WINREVAIR [Suspect]
     Active Substance: SOTATERCEPT-CSRK
     Indication: Pulmonary arterial hypertension
     Dates: start: 2024
  2. WINREVAIR [Suspect]
     Active Substance: SOTATERCEPT-CSRK
  3. WINREVAIR [Suspect]
     Active Substance: SOTATERCEPT-CSRK
  4. WINREVAIR [Suspect]
     Active Substance: SOTATERCEPT-CSRK
  5. ORENITRAM [Concomitant]
     Active Substance: TREPROSTINIL
     Indication: Pulmonary arterial hypertension
     Dosage: DOSE DESCRIPTION : 8 MILLIGRAM, TID?DAILY DOSE : 24 MILLIGRAM
     Route: 048

REACTIONS (2)
  - Subdural haematoma [Not Recovered/Not Resolved]
  - Fall [Unknown]
